FAERS Safety Report 14914909 (Version 1)
Quarter: 2018Q2

REPORT INFORMATION
  Report Type: Spontaneous
  Country: DE (occurrence: DE)
  Receive Date: 20180518
  Receipt Date: 20180518
  Transmission Date: 20180711
  Serious: Yes (Hospitalization)
  Sender: FDA-Public Use
  Company Number: DE-PFIZER INC-2018197688

PATIENT
  Age: 77 Year
  Sex: Male
  Weight: 78 kg

DRUGS (7)
  1. INSPRA [Suspect]
     Active Substance: EPLERENONE
     Dosage: 25 MG, 0-1-0-0, TABLETTEN
     Route: 048
  2. RAMIPRIL/HYDROCHLOROTHIAZIDE [Suspect]
     Active Substance: HYDROCHLOROTHIAZIDE\RAMIPRIL
     Dosage: 5|25 MG, 0-1-0-0, TABLETS
     Route: 048
  3. ACETYLSALICYLSAEURE [Concomitant]
     Active Substance: ASPIRIN
     Dosage: 100 MG, 0-1-0-0, TABLETTEN
     Route: 048
  4. PANTOPRAZOL [Concomitant]
     Active Substance: PANTOPRAZOLE SODIUM
     Dosage: 40 MG, AS NEEDED, TABLETS
     Route: 048
  5. GLYCEROLTRINITRAT [Concomitant]
     Active Substance: NITROGLYCERIN
     Dosage: 2 HUBS AS NEEDED, SPRAY HUBS
     Route: 060
  6. CARVEDILOL HEXAL [Concomitant]
     Active Substance: CARVEDILOL
     Dosage: 50 MG, 0.5-0-0.5-0, TABLETS
     Route: 048
  7. FLUVASTATIN [Concomitant]
     Active Substance: FLUVASTATIN SODIUM
     Dosage: 80 MG, 0-0-1-0, TABLETS
     Route: 048

REACTIONS (3)
  - Electrolyte imbalance [Unknown]
  - General physical health deterioration [Unknown]
  - Dyspnoea [Unknown]
